FAERS Safety Report 23494631 (Version 2)
Quarter: 2024Q1

REPORT INFORMATION
  Report Type: Report from Study
  Country: US (occurrence: US)
  Receive Date: 20240207
  Receipt Date: 20240313
  Transmission Date: 20240410
  Serious: No
  Sender: FDA-Public Use
  Company Number: US-BIOVITRUM-2023-US-019719

PATIENT
  Age: 78 Year
  Sex: Female

DRUGS (2)
  1. DOPTELET [Suspect]
     Active Substance: AVATROMBOPAG MALEATE
     Indication: Immune thrombocytopenia
     Dosage: DAILY?EVERY 48 HOURS
     Route: 048
     Dates: start: 20231118
  2. DOPTELET [Suspect]
     Active Substance: AVATROMBOPAG MALEATE
     Dosage: 7 DAYS A WEEK
     Route: 048

REACTIONS (12)
  - Liver disorder [Unknown]
  - Adverse drug reaction [Unknown]
  - Oliguria [Unknown]
  - Intentional product misuse [Unknown]
  - Brain fog [Unknown]
  - Memory impairment [Unknown]
  - Fatigue [Unknown]
  - Constipation [Unknown]
  - Diarrhoea [Unknown]
  - Faeces hard [Unknown]
  - Faeces soft [Unknown]
  - Abnormal faeces [Unknown]
